FAERS Safety Report 12694455 (Version 1)
Quarter: 2016Q3

REPORT INFORMATION
  Report Type: Spontaneous
  Country: US (occurrence: US)
  Receive Date: 20160829
  Receipt Date: 20160829
  Transmission Date: 20161109
  Serious: No
  Sender: FDA-Public Use
  Company Number: US-ACTELION-A-NJ2016-141364

PATIENT
  Age: 75 Year
  Sex: Male

DRUGS (1)
  1. VELETRI [Suspect]
     Active Substance: EPOPROSTENOL
     Indication: PULMONARY ARTERIAL HYPERTENSION
     Dosage: 40.5 NG/KG, PER MIN
     Route: 042
     Dates: start: 20160712

REACTIONS (5)
  - Cough [Unknown]
  - Nasopharyngitis [Unknown]
  - Chest pain [Unknown]
  - Respiratory tract congestion [Unknown]
  - Oedema peripheral [Unknown]
